FAERS Safety Report 12942708 (Version 1)
Quarter: 2016Q4

REPORT INFORMATION
  Report Type: Spontaneous
  Country: US (occurrence: US)
  Receive Date: 20161114
  Receipt Date: 20161114
  Transmission Date: 20170207
  Serious: Yes (Other)
  Sender: FDA-Public Use
  Company Number: US-BRISTOL-MYERS SQUIBB COMPANY-BMS-2016-094642

PATIENT
  Sex: Male

DRUGS (2)
  1. SUSTIVA [Suspect]
     Active Substance: EFAVIRENZ
     Indication: HIV INFECTION
     Dosage: 600 MG, QHS
     Route: 065
     Dates: start: 2002
  2. CLONAZEPAM. [Concomitant]
     Active Substance: CLONAZEPAM
     Indication: ANXIETY
     Route: 065

REACTIONS (6)
  - Insomnia [Unknown]
  - Depression [Unknown]
  - Suicidal ideation [Recovering/Resolving]
  - Hallucination [Unknown]
  - Drug abuse [Recovering/Resolving]
  - Mood swings [Unknown]
